FAERS Safety Report 18762223 (Version 3)
Quarter: 2021Q1

REPORT INFORMATION
  Report Type: Report from Study
  Country: GB (occurrence: GB)
  Receive Date: 20210120
  Receipt Date: 20210308
  Transmission Date: 20210419
  Serious: Yes (Other)
  Sender: FDA-Public Use
  Company Number: NVSC2021GB007927

PATIENT
  Age: 48 Year
  Sex: Female

DRUGS (2)
  1. COSENTYX [Suspect]
     Active Substance: SECUKINUMAB
     Indication: PSORIATIC ARTHROPATHY
     Dosage: 300 MG, QW  (WEEK 0,1, 2, 3 THEN Q4W)
     Route: 058
     Dates: start: 20210111
  2. COSENTYX [Suspect]
     Active Substance: SECUKINUMAB
     Dosage: 300 MG, QMO (E4W)
     Route: 058

REACTIONS (9)
  - Headache [Unknown]
  - Pruritus [Unknown]
  - Nasopharyngitis [Recovering/Resolving]
  - Dizziness [Unknown]
  - Nausea [Unknown]
  - Malaise [Recovering/Resolving]
  - Fatigue [Not Recovered/Not Resolved]
  - Diabetes mellitus [Unknown]
  - Sinusitis [Unknown]

NARRATIVE: CASE EVENT DATE: 20210111
